FAERS Safety Report 10199645 (Version 1)
Quarter: 2014Q2

REPORT INFORMATION
  Report Type: Spontaneous
  Country: US (occurrence: None)
  Receive Date: 20140523
  Receipt Date: 20140523
  Transmission Date: 20141212
  Serious: Yes (Other)
  Sender: FDA-Public Use
  Company Number: None

PATIENT
  Age: 65 Day
  Sex: Female
  Weight: 70.76 kg

DRUGS (1)
  1. ALENDRONATE SODIUM [Suspect]
     Indication: BONE DENSITY DECREASED
     Dosage: 4 PILLS?ONCE A WEEK?TAKEN BY MOUTH
     Route: 048
     Dates: start: 20140423, end: 20140505

REACTIONS (7)
  - Dysphagia [None]
  - Rash [None]
  - Rash [None]
  - Dyspepsia [None]
  - Flatulence [None]
  - Peripheral swelling [None]
  - Application site discolouration [None]
